FAERS Safety Report 11382794 (Version 2)
Quarter: 2015Q3

REPORT INFORMATION
  Report Type: Spontaneous
  Country: FR (occurrence: FR)
  Receive Date: 20150814
  Receipt Date: 20150820
  Transmission Date: 20151125
  Serious: Yes (Hospitalization)
  Sender: FDA-Public Use
  Company Number: FR-JNJFOC-20150802805

PATIENT
  Age: 78 Year
  Sex: Male

DRUGS (4)
  1. DUROGESIC [Suspect]
     Active Substance: FENTANYL
     Indication: NEURALGIA
     Route: 062
     Dates: start: 20150625
  2. DUROGESIC [Suspect]
     Active Substance: FENTANYL
     Indication: NEURALGIA
     Route: 062
  3. OXYCODONE HYDROCHLORIDE. [Suspect]
     Active Substance: OXYCODONE HYDROCHLORIDE
     Indication: PROCEDURAL PAIN
     Route: 048
     Dates: start: 20150622
  4. IMOVANE [Suspect]
     Active Substance: ZOPICLONE
     Indication: NEURALGIA
     Route: 048

REACTIONS (5)
  - Overdose [Unknown]
  - Urinary retention [Recovered/Resolved]
  - Confusional state [Not Recovered/Not Resolved]
  - Uraemic encephalopathy [Unknown]
  - Somnolence [Not Recovered/Not Resolved]

NARRATIVE: CASE EVENT DATE: 20150625
